FAERS Safety Report 6746626-1 (Version None)
Quarter: 2010Q2

REPORT INFORMATION
  Report Type: 
  Country: None (occurrence: None)
  Receive Date: 20100528
  Receipt Date: 20090828
  Transmission Date: 20101027
  Serious: Yes (Other)
  Sender: FDA-Public Use
  Company Number: US-ASTRAZENECA-2009UW17517

PATIENT
  Age: 57 Year
  Sex: Female

DRUGS (4)
  1. PRILOSEC OTC [Suspect]
     Dosage: 1 TABLET, 1 /DAY FOR 11 DAYS
     Route: 048
     Dates: start: 20081122, end: 20081203
  2. CALCIUM CARBONATE [Suspect]
     Route: 065
  3. ACTONEL [Concomitant]
     Dosage: UNKNOWN
  4. VITAMIN TAB [Concomitant]
     Dosage: UNKNOWN

REACTIONS (2)
  - ERYTHEMA MULTIFORME [None]
  - URTICARIA [None]
